FAERS Safety Report 10261641 (Version 2)
Quarter: 2014Q3

REPORT INFORMATION
  Report Type: Spontaneous
  Country: US (occurrence: US)
  Receive Date: 20140626
  Receipt Date: 20140815
  Transmission Date: 20150326
  Serious: No
  Sender: FDA-Public Use
  Company Number: US-009507513-1406USA000475

PATIENT
  Sex: Female

DRUGS (2)
  1. CLARITIN REDITABS [Suspect]
     Active Substance: LORATADINE
     Dosage: 4 DF, UNKNOWN
     Route: 048
  2. CLARITIN REDITABS [Suspect]
     Active Substance: LORATADINE
     Indication: PRODUCT USED FOR UNKNOWN INDICATION
     Dosage: 10 MG, BID
     Route: 048
     Dates: start: 20140521

REACTIONS (2)
  - Overdose [Unknown]
  - Drug ineffective [Unknown]

NARRATIVE: CASE EVENT DATE: 20140521
